FAERS Safety Report 8662020 (Version 3)
Quarter: 2012Q4

REPORT INFORMATION
  Report Type: 
  Country: FR (occurrence: FR)
  Receive Date: 20120712
  Receipt Date: 20121009
  Transmission Date: 20130627
  Serious: Yes (Hospitalization)
  Sender: FDA-Public Use
  Company Number: FR-GLAXOSMITHKLINE-B0788530A

PATIENT
  Age: 60 None
  Sex: Female

DRUGS (3)
  1. SERETIDE [Suspect]
     Indication: BRONCHIAL DISORDER
     Route: 055
     Dates: start: 2005, end: 20120317
  2. ATROVENT [Concomitant]
  3. ACTISOUFRE [Concomitant]

REACTIONS (8)
  - Alopecia [Unknown]
  - Skin fragility [Recovering/Resolving]
  - Erythema [Recovering/Resolving]
  - Feeling cold [Unknown]
  - Muscle spasms [Recovering/Resolving]
  - Dysphonia [Recovering/Resolving]
  - Migraine [Recovering/Resolving]
  - Bronchitis chronic [Recovering/Resolving]
